FAERS Safety Report 8091398-4 (Version None)
Quarter: 2012Q1

REPORT INFORMATION
  Report Type: 
  Country: None (occurrence: None)
  Receive Date: 20120129
  Receipt Date: 20120117
  Transmission Date: 20120608
  Serious: Yes (Other)
  Sender: FDA-Public Use
  Company Number: BR-AMGEN-BRASP2012004189

PATIENT
  Age: 75 Year
  Sex: Female
  Weight: 59 kg

DRUGS (5)
  1. ENBREL [Suspect]
     Indication: RHEUMATOID ARTHRITIS
     Dosage: 25 MG, 2X/WEEK
     Route: 058
     Dates: start: 20090701
  2. LOSARTAN POTASSIUM [Concomitant]
     Dosage: UNK
  3. SYNTHROID [Concomitant]
     Dosage: UNK
  4. INDAPEN                            /00026701/ [Concomitant]
     Dosage: UNK
  5. PHENYTOIN [Concomitant]
     Dosage: 2 DAILY (UNSPECIFIED)

REACTIONS (2)
  - ARTHRALGIA [None]
  - CONVULSION [None]
